FAERS Safety Report 21887733 (Version 1)
Quarter: 2023Q1

REPORT INFORMATION
  Report Type: Spontaneous
  Country: US (occurrence: None)
  Receive Date: 20230120
  Receipt Date: 20230120
  Transmission Date: 20230418
  Serious: No
  Sender: FDA-Public Use
  Company Number: 2023A014126

PATIENT
  Age: 26886 Day
  Sex: Female
  Weight: 70.3 kg

DRUGS (1)
  1. SYMBICORT [Suspect]
     Active Substance: BUDESONIDE\FORMOTEROL FUMARATE DIHYDRATE
     Indication: Asthma
     Dosage: 160/ 4.5 MCG, 2 INHALATIONS 2 TIMES A DAY
     Route: 055
     Dates: start: 202301, end: 20230114

REACTIONS (4)
  - Hypoaesthesia oral [Recovered/Resolved]
  - Rash erythematous [Not Recovered/Not Resolved]
  - Rash pruritic [Not Recovered/Not Resolved]
  - Lip swelling [Recovered/Resolved]

NARRATIVE: CASE EVENT DATE: 20230113
